FAERS Safety Report 14160769 (Version 2)
Quarter: 2018Q2

REPORT INFORMATION
  Report Type: Spontaneous
  Country: AT (occurrence: AT)
  Receive Date: 20171106
  Receipt Date: 20180619
  Transmission Date: 20180711
  Serious: Yes (Death)
  Sender: FDA-Public Use
  Company Number: AT-ASTRAZENECA-2017SF12530

PATIENT
  Age: 68 Year
  Sex: Male

DRUGS (1)
  1. SEROQUEL [Suspect]
     Active Substance: QUETIAPINE FUMARATE
     Indication: INSOMNIA
     Dosage: 25.0MG UNKNOWN
     Route: 048

REACTIONS (3)
  - Off label use [Fatal]
  - Completed suicide [Fatal]
  - Product use in unapproved indication [Fatal]
